FAERS Safety Report 11075098 (Version 1)
Quarter: 2015Q2

REPORT INFORMATION
  Report Type: Report from Study
  Country: AU (occurrence: AU)
  Receive Date: 20150429
  Receipt Date: 20150429
  Transmission Date: 20150821
  Serious: Yes (Life-Threatening, Hospitalization)
  Sender: FDA-Public Use
  Company Number: AU-PFIZER INC-2015143852

PATIENT
  Age: 32 Year
  Sex: Male

DRUGS (5)
  1. VERAPAMIL [Suspect]
     Active Substance: VERAPAMIL HYDROCHLORIDE
     Dosage: 3600 MG
     Route: 048
  2. FOSINOPRIL [Suspect]
     Active Substance: FOSINOPRIL
     Dosage: 200 MG
     Route: 048
  3. METFORMIN HCL [Suspect]
     Active Substance: METFORMIN HYDROCHLORIDE
     Dosage: 15 G, UNK
     Route: 048
  4. GLICLAZIDE [Suspect]
     Active Substance: GLICLAZIDE
     Dosage: 900 MG
     Route: 048
  5. ATENOLOL. [Suspect]
     Active Substance: ATENOLOL
     Dosage: 750 MG, UNK
     Route: 048

REACTIONS (5)
  - Acidosis [Unknown]
  - Hypotension [Unknown]
  - Intentional overdose [Unknown]
  - Renal failure [Unknown]
  - Bradycardia [Unknown]
